FAERS Safety Report 23352091 (Version 1)
Quarter: 2023Q4

REPORT INFORMATION
  Report Type: Spontaneous
  Country: US (occurrence: US)
  Receive Date: 20231229
  Receipt Date: 20231229
  Transmission Date: 20240110
  Serious: Yes (Other)
  Sender: FDA-Public Use
  Company Number: US-JNJFOC-20231263121

PATIENT
  Age: 7 Year
  Sex: Male

DRUGS (7)
  1. RISPERDAL [Suspect]
     Active Substance: RISPERIDONE
     Indication: Attention deficit hyperactivity disorder
     Route: 048
     Dates: start: 20080918
  2. RISPERDAL [Suspect]
     Active Substance: RISPERIDONE
     Indication: Affective disorder
     Route: 048
     Dates: start: 20081013
  3. RISPERDAL [Suspect]
     Active Substance: RISPERIDONE
     Indication: Tic
     Dosage: 0.5 MG EVERY MORNING AND 0.25 MG EVERY AFTERNOON
     Route: 048
     Dates: start: 20081111, end: 20090108
  4. RISPERDAL [Suspect]
     Active Substance: RISPERIDONE
     Dosage: 0.25 MG 2 TABLETS AT NIGHT AND INCREASE TO 1 MG AT NIGHTTIME
     Route: 048
     Dates: start: 20111227
  5. RISPERDAL [Suspect]
     Active Substance: RISPERIDONE
     Route: 048
     Dates: start: 20120619, end: 20140217
  6. RISPERDAL [Suspect]
     Active Substance: RISPERIDONE
     Route: 048
  7. RISPERIDONE [Suspect]
     Active Substance: RISPERIDONE
     Indication: Product used for unknown indication
     Route: 065

REACTIONS (6)
  - Obesity [Unknown]
  - Glucose tolerance impaired [Unknown]
  - Drug ineffective for unapproved indication [Unknown]
  - Treatment noncompliance [Unknown]
  - Off label use [Unknown]
  - Product dose omission issue [Unknown]

NARRATIVE: CASE EVENT DATE: 20080918
